FAERS Safety Report 12969254 (Version 2)
Quarter: 2016Q4

REPORT INFORMATION
  Report Type: Spontaneous
  Country: JP (occurrence: JP)
  Receive Date: 20161123
  Receipt Date: 20161202
  Transmission Date: 20170207
  Serious: Yes (Hospitalization)
  Sender: FDA-Public Use
  Company Number: JP-BIOMARINAP-JP-2016-111490

PATIENT
  Age: 25 Year
  Sex: Female

DRUGS (9)
  1. NAGLAZYME [Suspect]
     Active Substance: GALSULFASE
     Indication: MUCOPOLYSACCHARIDOSIS VI
     Dosage: 35 MG, QW
     Route: 041
     Dates: start: 20151216
  2. NAGLAZYME [Suspect]
     Active Substance: GALSULFASE
     Dosage: 1 MG/KG, QW
     Route: 041
     Dates: start: 20070517, end: 20080327
  3. ACETAMINOPHEN. [Concomitant]
     Active Substance: ACETAMINOPHEN
     Indication: PREMEDICATION
     Dosage: 200 MG, QW
     Route: 048
     Dates: start: 20080207
  4. SOLU-CORTEF [Concomitant]
     Active Substance: HYDROCORTISONE SODIUM SUCCINATE
     Indication: PREMEDICATION
     Dosage: 100 MG, QW
     Route: 042
     Dates: start: 20080918
  5. NAGLAZYME [Suspect]
     Active Substance: GALSULFASE
     Dosage: 25 MG, QW
     Route: 041
     Dates: start: 20080410, end: 20100623
  6. TRAVATAN Z [Concomitant]
     Active Substance: TRAVOPROST
     Indication: GLAUCOMA
     Dosage: UNK
     Route: 047
     Dates: start: 20100910
  7. RYSMON TG [Concomitant]
     Active Substance: TIMOLOL MALEATE
     Indication: GLAUCOMA
     Dosage: UNK
     Route: 047
     Dates: start: 20100910
  8. NAGLAZYME [Suspect]
     Active Substance: GALSULFASE
     Dosage: 30 MG, QW
     Route: 041
     Dates: start: 20100707, end: 20151209
  9. POLARAMINE [Concomitant]
     Active Substance: DEXCHLORPHENIRAMINE MALEATE
     Indication: PREMEDICATION
     Dosage: 5 MG, QW
     Route: 042
     Dates: start: 20081016

REACTIONS (3)
  - Central venous catheterisation [Recovered/Resolved]
  - Wound complication [Recovered/Resolved]
  - Infection prophylaxis [Recovered/Resolved]

NARRATIVE: CASE EVENT DATE: 20160720
